FAERS Safety Report 7759351-5 (Version None)
Quarter: 2011Q3

REPORT INFORMATION
  Report Type: 
  Country: None (occurrence: None)
  Receive Date: 20110919
  Receipt Date: 20110906
  Transmission Date: 20111222
  Serious: No
  Sender: FDA-Public Use
  Company Number: US-JNJFOC-20110905154

PATIENT
  Sex: Female
  Weight: 49.9 kg

DRUGS (8)
  1. FENTANYL-100 [Suspect]
     Indication: SPONDYLITIS
     Route: 062
     Dates: start: 20110801
  2. FENTANYL-100 [Suspect]
     Indication: NEUROPATHY PERIPHERAL
     Route: 062
     Dates: start: 20110801, end: 20110801
  3. BLOOD PRESSURE MEDICATION NOS [Concomitant]
     Indication: BLOOD PRESSURE
     Route: 048
     Dates: start: 20110101
  4. COUMADIN [Concomitant]
     Indication: ATRIAL FIBRILLATION
     Route: 048
     Dates: start: 20110101
  5. FENTANYL-100 [Suspect]
     Indication: SPONDYLITIS
     Route: 062
     Dates: start: 20110801, end: 20110801
  6. FENTANYL-100 [Suspect]
     Route: 062
     Dates: start: 20070101
  7. FENTANYL-100 [Suspect]
     Indication: NEUROPATHY PERIPHERAL
     Route: 062
     Dates: start: 20110801
  8. FENTANYL-100 [Suspect]
     Route: 062
     Dates: start: 20070101

REACTIONS (3)
  - NAUSEA [None]
  - WRONG TECHNIQUE IN DRUG USAGE PROCESS [None]
  - VOMITING [None]
